FAERS Safety Report 19847502 (Version 1)
Quarter: 2021Q3

REPORT INFORMATION
  Report Type: Spontaneous
  Country: FR (occurrence: FR)
  Receive Date: 20210917
  Receipt Date: 20210917
  Transmission Date: 20211014
  Serious: Yes (Other)
  Sender: FDA-Public Use
  Company Number: FR-AMGEN-FRASP2021143034

PATIENT
  Sex: Female
  Weight: 73 kg

DRUGS (1)
  1. OTEZLA [Suspect]
     Active Substance: APREMILAST
     Indication: PSORIASIS
     Dosage: 60 MILLIGRAM, QD
     Route: 048
     Dates: start: 20210413, end: 20210713

REACTIONS (4)
  - Major depression [Recovering/Resolving]
  - Hypokalaemia [Recovering/Resolving]
  - Pruritus [Recovering/Resolving]
  - Chest pain [Recovering/Resolving]

NARRATIVE: CASE EVENT DATE: 20210505
